APPROVED DRUG PRODUCT: ATAZANAVIR SULFATE
Active Ingredient: ATAZANAVIR SULFATE
Strength: EQ 150MG BASE
Dosage Form/Route: CAPSULE;ORAL
Application: A210575 | Product #001
Applicant: ZYDUS PHARMACEUTICALS USA INC
Approved: Jun 4, 2020 | RLD: No | RS: No | Type: DISCN